FAERS Safety Report 8166644-9 (Version None)
Quarter: 2012Q1

REPORT INFORMATION
  Report Type: 
  Country: None (occurrence: None)
  Receive Date: 20120227
  Receipt Date: 20120216
  Transmission Date: 20120608
  Serious: Yes (Other)
  Sender: FDA-Public Use
  Company Number: IT-SANOFI-AVENTIS-2012SA010294

PATIENT
  Age: 82 Year
  Sex: Male

DRUGS (4)
  1. AVODART [Suspect]
     Route: 065
     Dates: start: 20080101
  2. MAGNESIUM HYDROXIDE TAB [Suspect]
     Dosage: 0.5 POSOLOGICAL UNIT
     Route: 048
     Dates: start: 20050101
  3. LASIX [Suspect]
     Route: 048
     Dates: start: 20050101
  4. RAMIPRIL [Suspect]
     Route: 048
     Dates: start: 20050101

REACTIONS (2)
  - VISUAL ACUITY REDUCED [None]
  - PHOTOPHOBIA [None]
